FAERS Safety Report 4470491-9 (Version None)
Quarter: 2004Q4

REPORT INFORMATION
  Report Type: 
  Country: None (occurrence: None)
  Receive Date: 20041001
  Receipt Date: 20040913
  Transmission Date: 20050328
  Serious: Yes (Death)
  Sender: FDA-Public Use
  Company Number: M2004-1333

PATIENT
  Age: 36 Year
  Sex: Female

DRUGS (3)
  1. DIAZEPAM [Suspect]
  2. MELPERONE [Suspect]
     Indication: OVERDOSE
  3. CARBAMAZEPINE [Concomitant]

REACTIONS (6)
  - ARRHYTHMIA [None]
  - COMPLETED SUICIDE [None]
  - DRUG TOXICITY [None]
  - OVERDOSE [None]
  - RESPIRATORY DEPRESSION [None]
  - VENTRICULAR FIBRILLATION [None]
